FAERS Safety Report 9331716 (Version 2)
Quarter: 2013Q2

REPORT INFORMATION
  Report Type: Spontaneous
  Country: CA (occurrence: CA)
  Receive Date: 20130605
  Receipt Date: 20130611
  Transmission Date: 20140414
  Serious: Yes (Life-Threatening, Hospitalization)
  Sender: FDA-Public Use
  Company Number: CA-ABBOTT-13X-028-1099113-00

PATIENT
  Age: 2 Year
  Sex: Female
  Weight: 13.7 kg

DRUGS (2)
  1. BIAXIN PEDIATRIC [Suspect]
     Indication: PHARYNGITIS
     Dosage: SUSPENSION 4.2ML (105MG)
     Route: 048
     Dates: start: 20130514, end: 20130523
  2. BIAXIN PEDIATRIC [Suspect]
     Indication: INFECTIOUS MONONUCLEOSIS

REACTIONS (6)
  - Anaemia [Recovered/Resolved]
  - Convulsion [Recovered/Resolved]
  - Loss of consciousness [Recovered/Resolved]
  - Hemiplegia [Unknown]
  - Incontinence [Unknown]
  - Daydreaming [Recovered/Resolved]
